FAERS Safety Report 7201850-9 (Version None)
Quarter: 2010Q4

REPORT INFORMATION
  Report Type: 
  Country: None (occurrence: None)
  Receive Date: 20101229
  Receipt Date: 20101222
  Transmission Date: 20110411
  Serious: Yes (Death)
  Sender: FDA-Public Use
  Company Number: JP-ROCHE-750350

PATIENT
  Age: 48 Year
  Sex: Male

DRUGS (1)
  1. AVASTIN [Suspect]
     Indication: LARGE INTESTINE CARCINOMA
     Dosage: DOSE FORM: INJECTION, DOSE IS UNCERTAIN
     Route: 041

REACTIONS (1)
  - DISEASE PROGRESSION [None]
